FAERS Safety Report 9123881 (Version 1)
Quarter: 2013Q1

REPORT INFORMATION
  Report Type: Spontaneous
  Country: FR (occurrence: FR)
  Receive Date: 20130227
  Receipt Date: 20130227
  Transmission Date: 20140127
  Serious: Yes (Other)
  Sender: FDA-Public Use
  Company Number: FR-BAYER-201042816GPV

PATIENT
  Age: 35 Year
  Sex: Female

DRUGS (1)
  1. GADOVIST [Suspect]
     Indication: PRODUCT USED FOR UNKNOWN INDICATION
     Route: 065
     Dates: start: 20100930, end: 20100930

REACTIONS (2)
  - Dyspnoea [Recovered/Resolved]
  - Acne [Recovered/Resolved]
